FAERS Safety Report 13939701 (Version 1)
Quarter: 2017Q3

REPORT INFORMATION
  Report Type: Spontaneous
  Country: AU (occurrence: AU)
  Receive Date: 20170906
  Receipt Date: 20170906
  Transmission Date: 20171127
  Serious: Yes (Life-Threatening)
  Sender: FDA-Public Use
  Company Number: AU-ACCORD-057950

PATIENT
  Sex: Male

DRUGS (5)
  1. PLAQUENIL [Suspect]
     Active Substance: HYDROXYCHLOROQUINE SULFATE
     Indication: CHRONIC SPONTANEOUS URTICARIA
  2. MONTELUKAST [Suspect]
     Active Substance: MONTELUKAST SODIUM
     Indication: CHRONIC SPONTANEOUS URTICARIA
  3. XOLAIR [Concomitant]
     Active Substance: OMALIZUMAB
     Indication: CHRONIC SPONTANEOUS URTICARIA
  4. METHOTREXATE. [Suspect]
     Active Substance: METHOTREXATE
     Indication: CHRONIC SPONTANEOUS URTICARIA
  5. AZATHIOPRINE. [Suspect]
     Active Substance: AZATHIOPRINE
     Indication: CHRONIC SPONTANEOUS URTICARIA

REACTIONS (2)
  - Drug ineffective [Unknown]
  - Off label use [Unknown]
